FAERS Safety Report 7714872-6 (Version None)
Quarter: 2011Q3

REPORT INFORMATION
  Report Type: 
  Country: None (occurrence: None)
  Receive Date: 20110822
  Receipt Date: 20110804
  Transmission Date: 20111222
  Serious: Yes (Death, Other)
  Sender: FDA-Public Use
  Company Number: 2011MA011471

PATIENT
  Age: 28 Year

DRUGS (8)
  1. CLONAZEPAM [Suspect]
  2. METHADONE HCL [Suspect]
     Dosage: 0.9 MG/L
  3. CODEINE SULFATE [Suspect]
  4. TEMAZEPAM [Suspect]
  5. ACETAMINOPHEN [Suspect]
  6. VENLAFAXINE [Suspect]
  7. DIAZEPAM [Suspect]
  8. NORDIAZEPAM (NO PREF. NAME) [Suspect]

REACTIONS (8)
  - MULTIPLE DRUG OVERDOSE [None]
  - TOXICITY TO VARIOUS AGENTS [None]
  - PULMONARY CONGESTION [None]
  - NEEDLE TRACK MARKS [None]
  - BRONCHOPNEUMONIA [None]
  - STUPOR [None]
  - SNORING [None]
  - ASPIRATION [None]
